FAERS Safety Report 9406671 (Version 1)
Quarter: 2013Q3

REPORT INFORMATION
  Report Type: Spontaneous
  Country: US (occurrence: US)
  Receive Date: 20130718
  Receipt Date: 20130718
  Transmission Date: 20140515
  Serious: Yes (Other)
  Sender: FDA-Public Use
  Company Number: US-SANOFI-AVENTIS-2013SA071465

PATIENT
  Sex: 0

DRUGS (1)
  1. LANTUS [Suspect]
     Route: 051

REACTIONS (2)
  - Fear of death [Unknown]
  - Blood glucose decreased [Unknown]
